FAERS Safety Report 9360815 (Version 1)
Quarter: 2013Q2

REPORT INFORMATION
  Report Type: Spontaneous
  Country: US (occurrence: None)
  Receive Date: 20130620
  Receipt Date: 20130620
  Transmission Date: 20140414
  Serious: Yes (Hospitalization)
  Sender: FDA-Public Use
  Company Number: None

PATIENT
  Age: 43 Year
  Sex: Male

DRUGS (1)
  1. STIVARGA [Suspect]
     Indication: SOFT TISSUE CANCER
     Dosage: 3 WEEKS ON + 1 WEEK OFF?50-24-2013
     Route: 048

REACTIONS (1)
  - Thrombosis [None]
